FAERS Safety Report 5859557-6 (Version None)
Quarter: 2008Q3

REPORT INFORMATION
  Report Type: 
  Country: None (occurrence: None)
  Receive Date: 20080827
  Receipt Date: 20080821
  Transmission Date: 20090109
  Serious: Yes (Hospitalization)
  Sender: FDA-Public Use
  Company Number: A0744594A

PATIENT
  Age: 55 Year
  Sex: Male
  Weight: 90.9 kg

DRUGS (6)
  1. AVANDIA [Suspect]
     Dosage: 4MG PER DAY
     Route: 048
     Dates: start: 20010904, end: 20080201
  2. ATENOLOL [Concomitant]
     Dates: start: 20010101, end: 20070101
  3. ZOCOR [Concomitant]
     Dates: start: 20020101, end: 20040101
  4. LOVAZA [Concomitant]
  5. NAPROSYN [Concomitant]
  6. LISINOPRIL [Concomitant]

REACTIONS (6)
  - CARDIAC FAILURE CONGESTIVE [None]
  - CEREBROVASCULAR DISORDER [None]
  - CHEST PAIN [None]
  - HEART DISEASE CONGENITAL [None]
  - MYOCARDIAL INFARCTION [None]
  - TRANSIENT ISCHAEMIC ATTACK [None]
